FAERS Safety Report 5856182-8 (Version None)
Quarter: 2008Q3

REPORT INFORMATION
  Report Type: 
  Country: None (occurrence: None)
  Receive Date: 20080825
  Receipt Date: 20080814
  Transmission Date: 20090109
  Serious: Yes (Other)
  Sender: FDA-Public Use
  Company Number: A0726822A

PATIENT
  Age: 27 Year
  Sex: Female

DRUGS (8)
  1. LAMICTAL [Suspect]
     Indication: PARTIAL SEIZURES
     Route: 048
     Dates: start: 20070801
  2. LYRICA [Suspect]
     Indication: FIBROMYALGIA
     Dosage: 25MG PER DAY
     Dates: start: 20080401
  3. CLONOPIN [Suspect]
     Indication: EPILEPSY
  4. PROTONIX [Concomitant]
  5. TUMS [Concomitant]
  6. FOLIC ACID [Concomitant]
  7. MULTI-VITAMIN [Concomitant]
  8. CARAFATE [Concomitant]

REACTIONS (15)
  - ANXIETY [None]
  - BURNING SENSATION [None]
  - CONVULSION [None]
  - DEPRESSION [None]
  - DRUG INEFFECTIVE [None]
  - FEELING COLD [None]
  - INCREASED APPETITE [None]
  - PALPITATIONS [None]
  - PRURITUS [None]
  - RASH [None]
  - RASH ERYTHEMATOUS [None]
  - RASH GENERALISED [None]
  - RASH MACULAR [None]
  - TEMPERATURE INTOLERANCE [None]
  - TREMOR [None]
